FAERS Safety Report 17658178 (Version 1)
Quarter: 2020Q2

REPORT INFORMATION
  Report Type: Spontaneous
  Country: US (occurrence: US)
  Receive Date: 20200411
  Receipt Date: 20200411
  Transmission Date: 20200713
  Serious: Yes (Other)
  Sender: FDA-Public Use
  Company Number: NVSC2020US096188

PATIENT
  Sex: Female

DRUGS (1)
  1. TYKERB [Suspect]
     Active Substance: LAPATINIB DITOSYLATE
     Indication: BREAST CANCER FEMALE
     Dosage: 4 DF, QD (AS DIRECTED)
     Route: 048

REACTIONS (3)
  - Central nervous system lesion [Not Recovered/Not Resolved]
  - Drug ineffective [Unknown]
  - Single component of a two-component product administered [Unknown]
